FAERS Safety Report 8967881 (Version 1)
Quarter: 2012Q4

REPORT INFORMATION
  Report Type: 
  Country: US (occurrence: US)
  Receive Date: 20121218
  Receipt Date: 20121218
  Transmission Date: 20130627
  Serious: No
  Sender: FDA-Public Use
  Company Number: US-GLAXOSMITHKLINE-A0951150A

PATIENT
  Age: 71 Year
  Sex: Female

DRUGS (5)
  1. COREG CR [Suspect]
     Indication: HYPERTENSION
     Dosage: 20MG Per day
     Route: 048
     Dates: start: 20110827
  2. IRON SUPPLEMENT [Suspect]
  3. STOOL SOFTENER [Suspect]
  4. NITROFURANTOIN [Concomitant]
     Indication: URINARY TRACT INFECTION
  5. UNSPECIFIED MEDICATIONS [Concomitant]

REACTIONS (4)
  - Nocturia [Not Recovered/Not Resolved]
  - Dysuria [Recovered/Resolved]
  - Bladder pain [Not Recovered/Not Resolved]
  - Urinary tract pain [Not Recovered/Not Resolved]
